FAERS Safety Report 26069256 (Version 1)
Quarter: 2025Q4

REPORT INFORMATION
  Report Type: Spontaneous
  Country: US (occurrence: US)
  Receive Date: 20251120
  Receipt Date: 20251120
  Transmission Date: 20260117
  Serious: No
  Sender: AMNEAL
  Company Number: US-AMNEAL PHARMACEUTICALS-2025-AMRX-03988

PATIENT
  Age: 78 Year
  Sex: Male
  Weight: 61.224 kg

DRUGS (2)
  1. CREXONT [Suspect]
     Active Substance: CARBIDOPA\LEVODOPA
     Indication: Parkinson^s disease
     Dosage: 87.5/350MG, 5 CAPSULES (2 CAPSULES AT MORNING, 1 CAPSULE AT AFTERNOON, 2 CAPSULES AT NIGHT)
     Route: 048
     Dates: start: 202508
  2. FARXIGA [Concomitant]
     Active Substance: DAPAGLIFLOZIN PROPANEDIOL
     Route: 065

REACTIONS (3)
  - Foreign body in throat [Recovered/Resolved]
  - Product use complaint [Unknown]
  - Nausea [Recovered/Resolved]

NARRATIVE: CASE EVENT DATE: 20251011
